FAERS Safety Report 11115782 (Version 2)
Quarter: 2015Q4

REPORT INFORMATION
  Report Type: Spontaneous
  Country: US (occurrence: US)
  Receive Date: 20150515
  Receipt Date: 20151207
  Transmission Date: 20160304
  Serious: No
  Sender: FDA-Public Use
  Company Number: US-009507513-1505USA004566

PATIENT
  Sex: Male
  Weight: 92.97 kg

DRUGS (2)
  1. SERTRALINE HYDROCHLORIDE. [Concomitant]
     Active Substance: SERTRALINE HYDROCHLORIDE
     Indication: DEPRESSION
     Dosage: UNK
     Dates: start: 200801, end: 200908
  2. PROPECIA [Suspect]
     Active Substance: FINASTERIDE
     Indication: ALOPECIA
     Dosage: 1 MG, QD
     Route: 048
     Dates: start: 200803, end: 201201

REACTIONS (13)
  - Cognitive disorder [Not Recovered/Not Resolved]
  - Organic erectile dysfunction [Unknown]
  - Anogenital warts [Unknown]
  - Sexual dysfunction [Not Recovered/Not Resolved]
  - Anxiety [Unknown]
  - Benign prostatic hyperplasia [Unknown]
  - Erectile dysfunction [Unknown]
  - Testicular failure [Unknown]
  - Hypertension [Unknown]
  - Loss of libido [Unknown]
  - Tendon operation [Unknown]
  - Hypogonadism [Unknown]
  - Drug ineffective [Unknown]

NARRATIVE: CASE EVENT DATE: 2008
